FAERS Safety Report 7268001-6 (Version None)
Quarter: 2011Q1

REPORT INFORMATION
  Report Type: 
  Country: None (occurrence: None)
  Receive Date: 20110201
  Receipt Date: 20110126
  Transmission Date: 20110831
  Serious: Yes (Other)
  Sender: FDA-Public Use
  Company Number: US-ABBOTT-11P-163-0700734-00

PATIENT
  Age: 52 Year
  Sex: Female
  Weight: 56.7 kg

DRUGS (4)
  1. VICODIN [Suspect]
     Indication: OSTEOARTHRITIS
     Dates: start: 20070601
  2. NEURONTIN [Suspect]
     Indication: OSTEOARTHRITIS
     Route: 048
     Dates: start: 20060601, end: 20070601
  3. TIMOLOL [Suspect]
     Indication: OSTEOARTHRITIS
     Dates: start: 20070601
  4. NEURONTIN [Suspect]
     Route: 048

REACTIONS (2)
  - OSTEOARTHRITIS [None]
  - UTERINE DISORDER [None]
